FAERS Safety Report 12941228 (Version 1)
Quarter: 2016Q4

REPORT INFORMATION
  Report Type: Spontaneous
  Country: US (occurrence: US)
  Receive Date: 20161114
  Receipt Date: 20161114
  Transmission Date: 20170207
  Serious: Yes (Life-Threatening)
  Sender: FDA-Public Use
  Company Number: US-ALLERGAN-1670350US

PATIENT
  Age: 51 Year
  Sex: Female
  Weight: 69.39 kg

DRUGS (3)
  1. BOTOX [Suspect]
     Active Substance: ONABOTULINUMTOXINA
     Dosage: 100 ML, SINGLE
     Route: 043
     Dates: start: 20151014, end: 20151014
  2. BOTOX [Suspect]
     Active Substance: ONABOTULINUMTOXINA
     Indication: URGE INCONTINENCE
     Dosage: 200 ML, SINGLE
     Route: 043
     Dates: start: 20160518, end: 20160518
  3. ELMIRON [Concomitant]
     Active Substance: PENTOSAN POLYSULFATE SODIUM
     Indication: PRODUCT USED FOR UNKNOWN INDICATION
     Dosage: UNK

REACTIONS (8)
  - Bladder mass [Unknown]
  - Obstructive uropathy [Unknown]
  - Ureteric obstruction [Not Recovered/Not Resolved]
  - Urinary incontinence [Unknown]
  - Wrong technique in product usage process [Unknown]
  - Bladder cancer [Not Recovered/Not Resolved]
  - Blood urine present [Unknown]
  - Cystitis interstitial [Unknown]

NARRATIVE: CASE EVENT DATE: 201608
